FAERS Safety Report 5960973-2 (Version None)
Quarter: 2008Q4

REPORT INFORMATION
  Report Type: 
  Country: None (occurrence: None)
  Receive Date: 20081121
  Receipt Date: 20081117
  Transmission Date: 20090506
  Serious: Yes (Life-Threatening, Hospitalization, Other)
  Sender: FDA-Public Use
  Company Number: FR-BRISTOL-MYERS SQUIBB COMPANY-14240394

PATIENT
  Age: 30 Year
  Sex: Male

DRUGS (1)
  1. GLUCOPHAGE [Suspect]
     Dosage: 120 DOSAGE FORM = 120 TABLETS
     Route: 048
     Dates: start: 20071223, end: 20071223

REACTIONS (7)
  - CEREBRAL ISCHAEMIA [None]
  - HEPATIC FAILURE [None]
  - INTENTIONAL OVERDOSE [None]
  - LACTIC ACIDOSIS [None]
  - LUNG DISORDER [None]
  - SHOCK [None]
  - SUICIDE ATTEMPT [None]
